FAERS Safety Report 5950184-9 (Version None)
Quarter: 2008Q4

REPORT INFORMATION
  Report Type: 
  Country: None (occurrence: None)
  Receive Date: 20081112
  Receipt Date: 20081112
  Transmission Date: 20090506
  Serious: Yes (Death, Disabling)
  Sender: FDA-Public Use
  Company Number: A0631943A

PATIENT
  Age: 92 Year
  Sex: Male
  Weight: 90.9 kg

DRUGS (10)
  1. REQUIP [Suspect]
     Indication: RESTLESS LEGS SYNDROME
     Dosage: .5MG PER DAY
     Route: 048
     Dates: start: 20061102, end: 20061115
  2. CELEBREX [Concomitant]
     Dosage: 200MG THREE TIMES PER DAY
     Route: 048
     Dates: start: 20050523
  3. ZANAFLEX [Concomitant]
     Dosage: 4MG THREE TIMES PER DAY
     Route: 048
     Dates: start: 20040101
  4. BACLOFEN [Concomitant]
     Dosage: 10MG THREE TIMES PER DAY
     Route: 048
     Dates: start: 20051017
  5. LEVOTHYROXINE SODIUM [Concomitant]
     Dosage: 125MCG THREE TIMES PER DAY
     Route: 048
     Dates: start: 20040101
  6. PROSCAR [Concomitant]
     Dosage: 5MG THREE TIMES PER DAY
     Route: 048
     Dates: start: 20040101
  7. MACRODANTIN [Concomitant]
     Dosage: 50MG THREE TIMES PER DAY
     Route: 048
     Dates: start: 20051025
  8. MULTI-VITAMIN [Concomitant]
     Route: 048
  9. ZOLOFT [Concomitant]
  10. SYNTHROID [Concomitant]

REACTIONS (3)
  - GASTROINTESTINAL HAEMORRHAGE [None]
  - HALLUCINATION [None]
  - PNEUMONIA [None]
